FAERS Safety Report 22206107 (Version 1)
Quarter: 2023Q2

REPORT INFORMATION
  Report Type: Spontaneous
  Country: US (occurrence: US)
  Receive Date: 20230413
  Receipt Date: 20230413
  Transmission Date: 20230722
  Serious: Yes (Hospitalization, Other)
  Sender: FDA-Public Use
  Company Number: US-AMGEN-USASP2023059799

PATIENT
  Sex: Male

DRUGS (2)
  1. ROMIPLOSTIM [Suspect]
     Active Substance: ROMIPLOSTIM
     Indication: Myelodysplastic syndrome
     Dosage: UNK
     Route: 065
  2. AZACITIDINE [Concomitant]
     Active Substance: AZACITIDINE
     Indication: Myelodysplastic syndrome
     Dosage: 150 MILLIGRAM, QD, FOR 5 DAYS

REACTIONS (8)
  - Cardiac failure [Recovered/Resolved]
  - Pneumonia [Recovered/Resolved]
  - Hip fracture [Recovered/Resolved]
  - Myeloproliferative neoplasm [Unknown]
  - Myelodysplastic syndrome [Unknown]
  - VEXAS syndrome [Unknown]
  - Overlap syndrome [Unknown]
  - Off label use [Unknown]
